FAERS Safety Report 12263191 (Version 2)
Quarter: 2016Q2

REPORT INFORMATION
  Report Type: Spontaneous
  Country: FR (occurrence: FR)
  Receive Date: 20160413
  Receipt Date: 20160421
  Transmission Date: 20160815
  Serious: Yes (Other)
  Sender: FDA-Public Use
  Company Number: FR-ASTRAZENECA-2015SE76868

PATIENT
  Age: 18580 Day
  Sex: Female
  Weight: 66 kg

DRUGS (6)
  1. OLAPARIB [Suspect]
     Active Substance: OLAPARIB
     Indication: GENE MUTATION
     Route: 048
     Dates: start: 20150630, end: 20150803
  2. OLAPARIB [Suspect]
     Active Substance: OLAPARIB
     Indication: GENE MUTATION
     Dosage: 200 MG TWO TIMES PER DAY TWO WEEKS OUT OF EVERY THREE WEEKS
     Route: 048
  3. OLAPARIB [Suspect]
     Active Substance: OLAPARIB
     Indication: GENE MUTATION
     Route: 048
     Dates: start: 20150817, end: 20150824
  4. OLAPARIB [Suspect]
     Active Substance: OLAPARIB
     Indication: OVARIAN CANCER
     Route: 048
     Dates: start: 20150817, end: 20150824
  5. OLAPARIB [Suspect]
     Active Substance: OLAPARIB
     Indication: OVARIAN CANCER
     Dosage: 200 MG TWO TIMES PER DAY TWO WEEKS OUT OF EVERY THREE WEEKS
     Route: 048
  6. OLAPARIB [Suspect]
     Active Substance: OLAPARIB
     Indication: OVARIAN CANCER
     Route: 048
     Dates: start: 20150630, end: 20150803

REACTIONS (3)
  - Off label use [Not Recovered/Not Resolved]
  - Malignant neoplasm progression [Not Recovered/Not Resolved]
  - Thrombocytopenia [Recovering/Resolving]

NARRATIVE: CASE EVENT DATE: 20150803
